FAERS Safety Report 13453126 (Version 6)
Quarter: 2017Q4

REPORT INFORMATION
  Report Type: Report from Study
  Country: US (occurrence: US)
  Receive Date: 20170418
  Receipt Date: 20171031
  Transmission Date: 20180320
  Serious: No
  Sender: FDA-Public Use
  Company Number: PHHY2016US019094

PATIENT
  Age: 41 Year
  Sex: Female
  Weight: 61.68 kg

DRUGS (15)
  1. MELATONIN [Concomitant]
     Active Substance: MELATONIN
     Indication: SLEEP DISORDER
     Dosage: 3 MG, PRN
     Route: 065
     Dates: start: 20161122
  2. KLOR-CON [Concomitant]
     Active Substance: POTASSIUM CHLORIDE
     Indication: PROPHYLAXIS
  3. VITAMIN D [Concomitant]
     Active Substance: CHOLECALCIFEROL
     Dosage: 50000 IU, QW
     Route: 048
     Dates: start: 20160202
  4. PROCARDIN [Concomitant]
     Indication: HYPERTENSION
     Dosage: 90 MG, QD
     Route: 048
     Dates: start: 2012
  5. CLARITIN [Concomitant]
     Active Substance: LORATADINE
     Dosage: UNK
     Route: 065
     Dates: start: 20170309
  6. VITAMIN D [Concomitant]
     Active Substance: CHOLECALCIFEROL
     Indication: PROPHYLAXIS
     Dosage: 50000 IU, QW
     Route: 048
     Dates: start: 20140802
  7. GILENYA [Suspect]
     Active Substance: FINGOLIMOD HYDROCHLORIDE
     Indication: MULTIPLE SCLEROSIS
     Dosage: 0.5 MG, QD
     Route: 048
     Dates: start: 20150416
  8. IBUPROFEN. [Concomitant]
     Active Substance: IBUPROFEN
     Indication: PAIN
     Dosage: 6000 MG, PRN
     Route: 048
     Dates: start: 2000
  9. HCTZ [Concomitant]
     Active Substance: HYDROCHLOROTHIAZIDE
     Indication: HYPERTENSION
     Dosage: 25 MG, QD
     Route: 048
     Dates: start: 201212
  10. CLARITIN [Concomitant]
     Active Substance: LORATADINE
     Indication: HYPERSENSITIVITY
     Dosage: 10 MG, UNK
     Route: 048
     Dates: start: 2006
  11. ZANTAC [Concomitant]
     Active Substance: RANITIDINE HYDROCHLORIDE
     Indication: GASTROOESOPHAGEAL REFLUX DISEASE
     Dosage: 150 MG, UNK
     Route: 048
     Dates: start: 2013
  12. CALCIUM [Concomitant]
     Active Substance: CALCIUM
     Indication: PRODUCT USED FOR UNKNOWN INDICATION
     Dosage: 600 MG, QD
     Route: 048
     Dates: start: 2011
  13. KLOR-CON [Concomitant]
     Active Substance: POTASSIUM CHLORIDE
     Indication: ELECTROLYTE SUBSTITUTION THERAPY
     Dosage: 40 MG, QD
     Route: 048
     Dates: start: 20161122
  14. KLONOPIN [Concomitant]
     Active Substance: CLONAZEPAM
     Indication: ANXIETY
     Dosage: 0.5 MG, PRN
     Route: 048
     Dates: start: 20150410
  15. DIFLUCAN [Concomitant]
     Active Substance: FLUCONAZOLE
     Indication: FUNGAL INFECTION
     Dosage: UNK
     Route: 048
     Dates: start: 201612, end: 201612

REACTIONS (13)
  - Flushing [Unknown]
  - Nausea [Unknown]
  - Blood pressure increased [Recovered/Resolved]
  - Headache [Unknown]
  - Sinus congestion [Recovered/Resolved]
  - Bronchitis [Recovered/Resolved]
  - Fungal infection [Recovered/Resolved]
  - Nasopharyngitis [Recovered/Resolved]
  - Weight decreased [Recovered/Resolved]
  - Back pain [Recovered/Resolved]
  - Constipation [Recovered/Resolved]
  - Dysmenorrhoea [Unknown]
  - Abdominal pain lower [Recovered/Resolved]

NARRATIVE: CASE EVENT DATE: 20160102
